FAERS Safety Report 8477753-9 (Version None)
Quarter: 2012Q2

REPORT INFORMATION
  Report Type: 
  Country: None (occurrence: None)
  Receive Date: 20120629
  Receipt Date: 20120614
  Transmission Date: 20120825
  Serious: No
  Sender: FDA-Public Use
  Company Number: US-ASTRAZENECA-2012SE40407

PATIENT
  Age: 76 Year
  Sex: Female

DRUGS (2)
  1. SYMBICORT [Suspect]
     Route: 055
  2. OXYGEN [Concomitant]

REACTIONS (2)
  - DYSPNOEA [None]
  - DRUG DOSE OMISSION [None]
